FAERS Safety Report 19014824 (Version 5)
Quarter: 2021Q4

REPORT INFORMATION
  Report Type: Spontaneous
  Country: PL (occurrence: PL)
  Receive Date: 20210317
  Receipt Date: 20211117
  Transmission Date: 20220303
  Serious: Yes (Hospitalization, Other)
  Sender: FDA-Public Use
  Company Number: PL-RECORDATI-2021000807

PATIENT
  Age: 54 Year
  Sex: Female

DRUGS (12)
  1. AMLODIPINE [Suspect]
     Active Substance: AMLODIPINE BESYLATE
     Indication: Hypertension
     Dosage: 10 MILLIGRAM, ONCE A DAY
     Route: 065
  2. ATORVASTATIN [Interacting]
     Active Substance: ATORVASTATIN
     Indication: Dyslipidaemia
     Dosage: 40 MILLIGRAM, ONCE A DAY
     Route: 065
  3. METOPROLOL [Interacting]
     Active Substance: METOPROLOL
     Indication: Product used for unknown indication
     Dosage: UNK
     Route: 065
  4. NEBIVOLOL [Suspect]
     Active Substance: NEBIVOLOL
     Indication: Hypertension
     Dosage: 5 MILLIGRAM, ONCE A DAY
     Route: 065
  5. NEBIVOLOL [Suspect]
     Active Substance: NEBIVOLOL
     Indication: Dyslipidaemia
  6. NEBIVOLOL [Suspect]
     Active Substance: NEBIVOLOL
     Indication: Back pain
  7. PERINDOPRIL [Suspect]
     Active Substance: PERINDOPRIL
     Indication: Hypertension
     Dosage: UNK
     Route: 065
  8. CELECOXIB [Interacting]
     Active Substance: CELECOXIB
     Indication: Back pain
     Dosage: 200 MILLIGRAM, ONCE A DAY
     Route: 065
  9. CELECOXIB [Interacting]
     Active Substance: CELECOXIB
     Indication: Spinal pain
  10. GINKGO [Interacting]
     Active Substance: GINKGO
     Indication: Somnolence
     Dosage: 240 MILLIGRAM, ONCE A DAY
     Route: 065
  11. GINKGO [Interacting]
     Active Substance: GINKGO
     Indication: Spinal pain
  12. RISPERIDONE [Suspect]
     Active Substance: RISPERIDONE
     Indication: Schizophrenia
     Dosage: 4 MILLIGRAM, ONCE A DAY
     Route: 065

REACTIONS (6)
  - Bradycardia [Recovered/Resolved]
  - Tongue oedema [Recovered/Resolved]
  - Lip oedema [Unknown]
  - Angioedema [Recovered/Resolved]
  - Drug interaction [Recovered/Resolved]
  - Off label use [Unknown]
